FAERS Safety Report 15019788 (Version 1)
Quarter: 2018Q2

REPORT INFORMATION
  Report Type: Report from Study
  Country: US (occurrence: US)
  Receive Date: 20180618
  Receipt Date: 20180618
  Transmission Date: 20180711
  Serious: Yes (Hospitalization, Other)
  Sender: FDA-Public Use
  Company Number: US-ROCHE-1956056

PATIENT
  Sex: Male
  Weight: 12.5 kg

DRUGS (6)
  1. CORTEF [Concomitant]
     Active Substance: HYDROCORTISONE
     Route: 065
  2. LEVOXYL [Concomitant]
     Active Substance: LEVOTHYROXINE SODIUM
     Route: 065
  3. NUTROPIN AQ [Suspect]
     Active Substance: SOMATROPIN
     Indication: GROWTH HORMONE DEFICIENCY
     Dosage: NUSPIN 5 MG
     Route: 058
     Dates: start: 201701
  4. NUTROPIN AQ [Suspect]
     Active Substance: SOMATROPIN
     Dosage: NUSPIN 5 MG
     Route: 058
  5. HYDROCORTISONE. [Concomitant]
     Active Substance: HYDROCORTISONE
     Route: 048
  6. LEVOTHROID [Concomitant]
     Active Substance: LEVOTHYROXINE SODIUM
     Route: 065

REACTIONS (7)
  - Blindness cortical [Unknown]
  - Alanine aminotransferase decreased [Unknown]
  - Thyroxine free decreased [Unknown]
  - Insulin-like growth factor decreased [Unknown]
  - Ulcerative keratitis [Unknown]
  - Strabismus [Unknown]
  - Hypoacusis [Unknown]
